FAERS Safety Report 8618631-1 (Version None)
Quarter: 2012Q3

REPORT INFORMATION
  Report Type: 
  Country: None (occurrence: None)
  Receive Date: 20120814
  Receipt Date: 20120814
  Transmission Date: 20120928
  Serious: Yes (Other)
  Sender: FDA-Public Use
  Company Number: None

PATIENT
  Age: 46 Year
  Sex: Female
  Weight: 52.1637 kg

DRUGS (2)
  1. INDOMETHACIN [Suspect]
     Indication: POLYARTHRITIS
     Dosage: 75 MG 2X/DAY PO
     Route: 048
     Dates: start: 20120813, end: 20120815
  2. INDOMETHACIN [Suspect]
     Indication: RHEUMATOID ARTHRITIS
     Dosage: 75 MG 2X/DAY PO
     Route: 048
     Dates: start: 20120813, end: 20120815

REACTIONS (2)
  - HEADACHE [None]
  - VOMITING [None]
